FAERS Safety Report 11029528 (Version 1)
Quarter: 2015Q2

REPORT INFORMATION
  Report Type: Spontaneous
  Country: US (occurrence: None)
  Receive Date: 20150414
  Receipt Date: 20150414
  Transmission Date: 20150821
  Serious: Yes (Disabling)
  Sender: FDA-Public Use
  Company Number: None

PATIENT
  Sex: Female
  Weight: 108.86 kg

DRUGS (12)
  1. ATORVASTIN [Concomitant]
     Active Substance: ATORVASTATIN
  2. ESCITOLOPRAM [Concomitant]
  3. PROLIA [Suspect]
     Active Substance: DENOSUMAB
     Indication: BONE DISORDER
     Dosage: 1 INJECTION?EVERY 6 MONTHS?INJECTION
     Dates: start: 20120104, end: 20120711
  4. VITAMIN B12 [Concomitant]
     Active Substance: CYANOCOBALAMIN
  5. CLOPIDOGREL [Concomitant]
     Active Substance: CLOPIDOGREL BISULFATE
  6. NIFEDIPIN [Concomitant]
     Active Substance: NIFEDIPINE
  7. NAMENDA [Concomitant]
     Active Substance: MEMANTINE HYDROCHLORIDE
  8. HYDROCOCION-ACETAMINOPH [Concomitant]
  9. CALCIUM W D [Concomitant]
  10. ALPRAZOLAM. [Concomitant]
     Active Substance: ALPRAZOLAM
  11. PROLIA [Suspect]
     Active Substance: DENOSUMAB
     Indication: OSTEOPOROSIS
     Dosage: 1 INJECTION?EVERY 6 MONTHS?INJECTION
     Dates: start: 20120104, end: 20120711
  12. NEXIUM [Concomitant]
     Active Substance: ESOMEPRAZOLE MAGNESIUM

REACTIONS (3)
  - Loose tooth [None]
  - Pain in jaw [None]
  - Tooth loss [None]
